FAERS Safety Report 19008049 (Version 1)
Quarter: 2021Q1

REPORT INFORMATION
  Report Type: Spontaneous
  Country: US (occurrence: US)
  Receive Date: 20210315
  Receipt Date: 20210315
  Transmission Date: 20210420
  Serious: Yes (Hospitalization)
  Sender: FDA-Public Use
  Company Number: US-TEVA-2021-US-1887692

PATIENT
  Age: 76 Year
  Sex: Female

DRUGS (2)
  1. MARIJUANA [Interacting]
     Active Substance: CANNABIS SATIVA SUBSP. INDICA TOP
     Indication: DRUG ABUSE
     Route: 065
  2. WARFARIN [Suspect]
     Active Substance: WARFARIN
     Indication: ATRIAL FIBRILLATION
     Route: 065

REACTIONS (6)
  - Large intestinal haemorrhage [Recovering/Resolving]
  - Drug interaction [Recovering/Resolving]
  - Haemoglobin decreased [Unknown]
  - Drug abuse [Unknown]
  - International normalised ratio increased [Unknown]
  - Hypotension [Unknown]
